FAERS Safety Report 8854198 (Version 1)
Quarter: 2012Q4

REPORT INFORMATION
  Report Type: Report from Study
  Country: JP (occurrence: JP)
  Receive Date: 20121022
  Receipt Date: 20121022
  Transmission Date: 20130627
  Serious: Yes (Other)
  Sender: FDA-Public Use
  Company Number: JP-VERTEX PHARMACEUTICAL INC.-AE-2012-006180

PATIENT
  Age: 62 Year
  Sex: Male

DRUGS (29)
  1. VX-950 [Suspect]
     Indication: HEPATITIS C
     Dosage: 2250 mg, qd
     Route: 048
     Dates: start: 20120302, end: 20120405
  2. VX-950 [Suspect]
     Dosage: 1500 mg, qd
     Route: 048
     Dates: start: 20120406, end: 20120427
  3. VX-950 [Suspect]
     Dosage: 750 mg, qd
     Route: 048
     Dates: start: 20120428, end: 20120510
  4. VX-950 [Suspect]
     Dosage: 500 mg, qd
     Route: 048
     Dates: start: 20120518, end: 20120524
  5. RIBAVIRIN [Suspect]
     Indication: HEPATITIS C
     Dosage: 800 mg, qd
     Route: 048
     Dates: start: 20120302, end: 20120306
  6. RIBAVIRIN [Suspect]
     Dosage: 600 mg, qd
     Route: 048
     Dates: start: 20120307, end: 20120420
  7. RIBAVIRIN [Suspect]
     Dosage: 400 mg, qd
     Route: 048
     Dates: start: 20120421, end: 20120427
  8. RIBAVIRIN [Suspect]
     Dosage: 200 mg, qd
     Route: 048
     Dates: start: 20120519, end: 20120614
  9. RIBAVIRIN [Suspect]
     Dosage: 400 mg, qd
     Route: 048
     Dates: start: 20120615, end: 20120712
  10. RIBAVIRIN [Suspect]
     Dosage: 500 mg, qd
     Route: 048
     Dates: start: 20120713
  11. PEGINTRON                          /01543001/ [Suspect]
     Indication: HEPATITIS C
     Dosage: 1.5 ?g/kg, 1x/week
     Route: 058
     Dates: start: 20120302, end: 20120302
  12. PEGINTRON                          /01543001/ [Suspect]
     Dosage: 1.12 ?g/kg, 1x/week
     Route: 058
     Dates: start: 20120309, end: 20120309
  13. PEGINTRON                          /01543001/ [Suspect]
     Dosage: 1.31 ?g/kg, 1x/week
     Route: 058
     Dates: start: 20120316, end: 20120316
  14. PEGINTRON                          /01543001/ [Suspect]
     Dosage: 1 ?g/kg, 1x/week
     Route: 058
     Dates: start: 20120323, end: 20120330
  15. PEGINTRON                          /01543001/ [Suspect]
     Dosage: 0.75 ?g/kg, 1x/week
     Route: 058
     Dates: start: 20120406, end: 20120406
  16. PEGINTRON                          /01543001/ [Suspect]
     Dosage: 1 ?g/kg, 1x/week
     Route: 058
     Dates: start: 20120413, end: 20120413
  17. PEGINTRON                          /01543001/ [Suspect]
     Dosage: 1.2 ?g/kg, 1x/week
     Route: 058
     Dates: start: 20120420, end: 20120420
  18. PEGINTRON                          /01543001/ [Suspect]
     Dosage: 0.6 ?g/kg, 1x/week
     Route: 058
     Dates: start: 20120427, end: 20120511
  19. PEGINTRON                          /01543001/ [Suspect]
     Dosage: 1.2 ?g/kg, 1x/week
     Route: 058
     Dates: start: 20120518, end: 20120608
  20. PEGINTRON                          /01543001/ [Suspect]
     Dosage: 1.3 ?g/kg, 1x/week
     Route: 058
     Dates: start: 20120615, end: 20120706
  21. PEGINTRON                          /01543001/ [Suspect]
     Dosage: 1.5 ?g/kg, 1x/week
     Route: 058
     Dates: start: 20120713
  22. URSO                               /00465701/ [Concomitant]
     Dosage: 200 mg, qd
     Route: 048
     Dates: end: 20120314
  23. JANUVIA [Concomitant]
     Dosage: 50 mg, qd
     Route: 048
  24. ACTOS [Concomitant]
     Dosage: 15 mg, qd
     Route: 048
  25. AMARYL [Concomitant]
     Dosage: 6 mg, qd
     Route: 048
     Dates: end: 20120330
  26. TAKEPRON [Concomitant]
     Dosage: 15 mg, qd
     Route: 048
  27. SOLANAX [Concomitant]
     Route: 048
     Dates: start: 20120413
  28. SOLANAX [Concomitant]
     Route: 048
     Dates: start: 20120406, end: 20120412
  29. GLUFAST [Concomitant]
     Dosage: 30 mg, qd
     Route: 048
     Dates: start: 20120713

REACTIONS (4)
  - White blood cell count decreased [Not Recovered/Not Resolved]
  - Haemoglobin decreased [Not Recovered/Not Resolved]
  - Platelet count decreased [Not Recovered/Not Resolved]
  - Hyperuricaemia [Recovered/Resolved]
